FAERS Safety Report 20324244 (Version 1)
Quarter: 2022Q1

REPORT INFORMATION
  Report Type: Spontaneous
  Country: DE (occurrence: DE)
  Receive Date: 20220111
  Receipt Date: 20220111
  Transmission Date: 20220423
  Serious: Yes (Hospitalization, Other)
  Sender: FDA-Public Use
  Company Number: DE-CELLTRION HEALTHCARE HUNGARY KFT-2021DE017674

PATIENT

DRUGS (27)
  1. PACLITAXEL [Suspect]
     Active Substance: PACLITAXEL
     Indication: HER2 positive breast cancer
     Dosage: 80 MILLIGRAM/SQ. METER, QW, CYCLE 1
  2. PACLITAXEL [Suspect]
     Active Substance: PACLITAXEL
     Dosage: 80 MILLIGRAM/SQ. METER, QW, CYCLE 2
  3. PACLITAXEL [Suspect]
     Active Substance: PACLITAXEL
     Dosage: 80 MILLIGRAM/SQ. METER, QW, CYCLE 3
  4. PACLITAXEL [Suspect]
     Active Substance: PACLITAXEL
     Dosage: 80 MILLIGRAM/SQ. METER, QW, CYCLE 4
  5. PACLITAXEL [Suspect]
     Active Substance: PACLITAXEL
     Dosage: 80 MILLIGRAM/SQ. METER, QW, CYCLE 5
  6. PACLITAXEL [Suspect]
     Active Substance: PACLITAXEL
     Dosage: 80 MILLIGRAM/SQ. METER, QW, CYCLE 6
  7. PACLITAXEL [Suspect]
     Active Substance: PACLITAXEL
     Dosage: 80 MILLIGRAM/SQ. METER, QW, CYCLE 7
  8. PACLITAXEL [Suspect]
     Active Substance: PACLITAXEL
     Dosage: 80 MILLIGRAM/SQ. METER, QW, CYCLE 8
  9. PACLITAXEL [Suspect]
     Active Substance: PACLITAXEL
     Dosage: 80 MILLIGRAM/SQ. METER, QW, CYCLE 9
  10. PACLITAXEL [Suspect]
     Active Substance: PACLITAXEL
     Dosage: 80 MILLIGRAM/SQ. METER, QW, CYCLE 10
  11. PACLITAXEL [Suspect]
     Active Substance: PACLITAXEL
     Dosage: 80 MILLIGRAM/SQ. METER, QW, CYCLE 11
  12. PACLITAXEL [Suspect]
     Active Substance: PACLITAXEL
     Dosage: 80 MILLIGRAM/SQ. METER, QW, CYCLE 12
  13. TRASTUZUMAB [Suspect]
     Active Substance: TRASTUZUMAB
     Indication: HER2 positive breast cancer
     Dosage: 8 MILLIGRAM/KILOGRAM, CYCLE 1, LOADING DOSE
  14. TRASTUZUMAB [Suspect]
     Active Substance: TRASTUZUMAB
     Dosage: 6 MILLIGRAM/KILOGRAM, CYCLE 2
  15. TRASTUZUMAB [Suspect]
     Active Substance: TRASTUZUMAB
     Dosage: UNK UNK, CYCLE 3
  16. TRASTUZUMAB [Suspect]
     Active Substance: TRASTUZUMAB
     Dosage: UNK UNK, CYCLE 4
  17. TRASTUZUMAB [Suspect]
     Active Substance: TRASTUZUMAB
     Dosage: UNK UNK, CYCLE 5
  18. TRASTUZUMAB [Suspect]
     Active Substance: TRASTUZUMAB
     Dosage: UNK UNK, CYCLE 6
  19. TRASTUZUMAB [Suspect]
     Active Substance: TRASTUZUMAB
     Dosage: UNK UNK, CYCLE 7
  20. PERTUZUMAB [Suspect]
     Active Substance: PERTUZUMAB
     Indication: HER2 positive breast cancer
     Dosage: 840 MILLIGRAM, CYCLE 1, LOADING DOSE
  21. PERTUZUMAB [Suspect]
     Active Substance: PERTUZUMAB
     Dosage: 420 MILLIGRAM, Q3W, CYCLE 2
  22. PERTUZUMAB [Suspect]
     Active Substance: PERTUZUMAB
     Dosage: UNK UNK, CYCLE 3
  23. PERTUZUMAB [Suspect]
     Active Substance: PERTUZUMAB
     Dosage: UNK UNK, CYCLE 4
  24. PERTUZUMAB [Suspect]
     Active Substance: PERTUZUMAB
     Dosage: UNK UNK, CYCLE 5
  25. PERTUZUMAB [Suspect]
     Active Substance: PERTUZUMAB
     Dosage: UNK UNK, CYCLE 6
  26. PERTUZUMAB [Suspect]
     Active Substance: PERTUZUMAB
     Dosage: UNK UNK, CYCLE 7
  27. ADO-TRASTUZUMAB EMTANSINE [Suspect]
     Active Substance: ADO-TRASTUZUMAB EMTANSINE
     Indication: HER2 positive breast cancer
     Dosage: 3.6 MILLIGRAM/KILOGRAM, Q3W, 302 MG

REACTIONS (5)
  - Hypertensive crisis [Unknown]
  - COVID-19 [Unknown]
  - Acute kidney injury [Unknown]
  - Proteinuria [Unknown]
  - Albuminuria [Unknown]
